FAERS Safety Report 7198397-5 (Version None)
Quarter: 2010Q4

REPORT INFORMATION
  Report Type: 
  Country: None (occurrence: None)
  Receive Date: 20101227
  Receipt Date: 20101214
  Transmission Date: 20110411
  Serious: Yes (Hospitalization)
  Sender: FDA-Public Use
  Company Number: PHHY2010JP61642

PATIENT
  Sex: Female

DRUGS (11)
  1. AFINITOR [Suspect]
     Indication: METASTATIC RENAL CELL CARCINOMA
     Dosage: 10 MG DAILY
     Route: 048
     Dates: start: 20100506, end: 20100519
  2. WARFARIN [Suspect]
     Indication: PROPHYLAXIS
     Dosage: 2.5 MG
     Route: 048
     Dates: start: 20100506, end: 20100519
  3. NEXAVAR [Concomitant]
     Dosage: 400MG
     Route: 048
     Dates: start: 20100107, end: 20100204
  4. HYPEN [Concomitant]
     Indication: METASTATIC RENAL CELL CARCINOMA
     Dosage: 400MG
     Route: 048
     Dates: start: 20100506
  5. OXYCONTIN [Concomitant]
     Indication: METASTATIC RENAL CELL CARCINOMA
     Dosage: 10 MG
     Route: 048
     Dates: start: 20100506
  6. NOVAMIN [Concomitant]
     Indication: METASTATIC RENAL CELL CARCINOMA
     Dosage: 15 MG
     Route: 048
     Dates: start: 20100506
  7. MAGLAX [Concomitant]
     Indication: METASTATIC RENAL CELL CARCINOMA
     Dosage: 750 MG
     Route: 048
     Dates: start: 20100506
  8. OXINORM [Concomitant]
     Indication: METASTATIC RENAL CELL CARCINOMA
     Route: 048
  9. ARTIST [Concomitant]
     Dosage: 2.5 MG
     Route: 048
     Dates: start: 20100506, end: 20100519
  10. MYONAL [Concomitant]
     Dosage: 150 UG
     Route: 048
     Dates: start: 20100506, end: 20100519
  11. FERROUS CITRATE [Concomitant]
     Dosage: UNK
     Route: 048
     Dates: start: 20100506, end: 20100519

REACTIONS (4)
  - C-REACTIVE PROTEIN INCREASED [None]
  - DECREASED APPETITE [None]
  - HAEMOGLOBIN DECREASED [None]
  - PROTHROMBIN TIME PROLONGED [None]
